FAERS Safety Report 7425317-8 (Version None)
Quarter: 2011Q2

REPORT INFORMATION
  Report Type: 
  Country: None (occurrence: None)
  Receive Date: 20110420
  Receipt Date: 20110407
  Transmission Date: 20111010
  Serious: No
  Sender: FDA-Public Use
  Company Number: PHHY2011US29502

PATIENT
  Sex: Female

DRUGS (3)
  1. TASIGNA [Suspect]
     Dosage: 150 MG, BID
  2. NOVOLOG [Concomitant]
     Dosage: 4 UNITS, BID
  3. LANTUS [Concomitant]
     Dosage: 20 UNITS AT NIGHT

REACTIONS (1)
  - DRUG ADMINISTRATION ERROR [None]
